FAERS Safety Report 4337220-0 (Version None)
Quarter: 2004Q2

REPORT INFORMATION
  Report Type: 
  Country: None (occurrence: None)
  Receive Date: 20040401
  Receipt Date: 20030401
  Transmission Date: 20050107
  Serious: Yes (Other)
  Sender: FDA-Public Use
  Company Number: OSCN-PR-0304S-0095 (0)

PATIENT
  Sex: Female

DRUGS (2)
  1. OMNISCAN [Suspect]
     Dosage: 30 ML, SINGLE DOSE, I.V.
     Route: 042
     Dates: start: 20030327, end: 20030327
  2. .. [Concomitant]

REACTIONS (1)
  - ANAPHYLACTIC REACTION [None]
